FAERS Safety Report 4763536-X (Version None)
Quarter: 2005Q3

REPORT INFORMATION
  Report Type: 
  Country: None (occurrence: None)
  Receive Date: 20050908
  Receipt Date: 20050720
  Transmission Date: 20060218
  Serious: Yes (Death, Life-Threatening, Hospitalization, Other)
  Sender: FDA-Public Use
  Company Number: JP-ABBOTT-05P-087-0306421-00

PATIENT
  Sex: Male
  Weight: 50 kg

DRUGS (14)
  1. KLARICID [Suspect]
     Indication: PNEUMONIA
     Route: 048
     Dates: start: 20050617, end: 20050705
  2. LEVOFLOXACIN [Suspect]
     Indication: DRUG USE FOR UNKNOWN INDICATION
     Route: 048
     Dates: start: 20050604, end: 20050616
  3. FAROPENEM SODIUM [Concomitant]
     Indication: DRUG USE FOR UNKNOWN INDICATION
     Route: 048
     Dates: start: 20050706, end: 20050710
  4. SODIUM SULBACTAM/SODIUM AMPICILLIN [Concomitant]
     Indication: PNEUMONIA
     Route: 042
     Dates: start: 20050706, end: 20050715
  5. FOSFOMYCIN CALCIUM [Concomitant]
     Indication: PNEUMONIA
     Route: 042
     Dates: start: 20050715, end: 20050719
  6. BIAPENEM [Concomitant]
     Indication: PNEUMONIA
     Route: 042
     Dates: start: 20050716, end: 20050720
  7. MINOCYCLINE HYDROCHLORIDE [Concomitant]
     Indication: PNEUMONIA
     Route: 042
     Dates: start: 20050719, end: 20050720
  8. AMLODIPINE BESYLATE [Concomitant]
     Indication: HYPERTENSION
     Route: 048
     Dates: start: 20050604, end: 20050711
  9. FAMOTIDINE [Concomitant]
     Indication: GASTRITIS
     Route: 048
     Dates: start: 20050604, end: 20050711
  10. FEXOFENADINE HYDROCHLORIDE [Concomitant]
     Indication: RHINITIS
     Route: 048
     Dates: start: 20050607, end: 20050711
  11. MICAFUNGIN [Concomitant]
     Indication: PNEUMONIA
     Route: 042
     Dates: start: 20050719, end: 20050720
  12. BACTRIM [Concomitant]
     Indication: PNEUMONIA
     Route: 042
     Dates: start: 20050720, end: 20050720
  13. FUROSEMIDE [Concomitant]
     Indication: DIURETIC THERAPY
     Route: 042
     Dates: start: 20050711, end: 20050720
  14. OMEPRAZOLE [Concomitant]
     Indication: GASTRITIS
     Route: 042
     Dates: start: 20050711, end: 20050720

REACTIONS (9)
  - CARDIAC FAILURE [None]
  - DIALYSIS [None]
  - LIVER DISORDER [None]
  - LYMPHOCYTE STIMULATION TEST POSITIVE [None]
  - PNEUMONIA [None]
  - RENAL DISORDER [None]
  - RENAL FAILURE [None]
  - RESPIRATORY FAILURE [None]
  - VASCULITIS [None]
